FAERS Safety Report 4967131-9 (Version None)
Quarter: 2006Q2

REPORT INFORMATION
  Report Type: 
  Country: None (occurrence: None)
  Receive Date: 20060403
  Receipt Date: 20060323
  Transmission Date: 20061013
  Serious: Yes (Hospitalization)
  Sender: FDA-Public Use
  Company Number: A044-002-005978

PATIENT
  Age: 78 Year
  Sex: Female
  Weight: 51 kg

DRUGS (2)
  1. ARICEPT [Suspect]
     Indication: DEMENTIA ALZHEIMER'S TYPE
     Dosage: 5 MG, 1 IN 1 D, ORAL
     Route: 048
     Dates: start: 20051118, end: 20060101
  2. AGIT DEPOT SANOL (DIHYDROERGOTAMINE MESILATE) [Concomitant]

REACTIONS (6)
  - DECREASED APPETITE [None]
  - HAEMATOMA [None]
  - IDIOPATHIC THROMBOCYTOPENIC PURPURA [None]
  - LIP HAEMORRHAGE [None]
  - MUSCLE HAEMORRHAGE [None]
  - WEIGHT DECREASED [None]
